FAERS Safety Report 8850492 (Version 1)
Quarter: 2012Q4

REPORT INFORMATION
  Report Type: 
  Country: US (occurrence: US)
  Receive Date: 20121019
  Receipt Date: 20121019
  Transmission Date: 20130627
  Serious: Yes (Death)
  Sender: FDA-Public Use
  Company Number: US-ROCHE-1130973

PATIENT
  Sex: Male

DRUGS (3)
  1. RITUXAN [Suspect]
     Indication: PROSTATE CANCER
     Route: 042
     Dates: start: 20021203, end: 20030826
  2. RITUXAN [Suspect]
     Indication: OFF LABEL USE
  3. PREDNISONE [Concomitant]

REACTIONS (5)
  - Back pain [Unknown]
  - Oedema peripheral [Unknown]
  - Cardio-respiratory arrest [Fatal]
  - Prostate cancer metastatic [Fatal]
  - Hepatic failure [Fatal]
